FAERS Safety Report 25140557 (Version 1)
Quarter: 2025Q1

REPORT INFORMATION
  Report Type: Spontaneous
  Country: PL (occurrence: PL)
  Receive Date: 20250331
  Receipt Date: 20250331
  Transmission Date: 20250409
  Serious: Yes (Life-Threatening, Hospitalization)
  Sender: GE HEALTHCARE
  Company Number: PL-GE HEALTHCARE-2023CSU006216

PATIENT
  Age: 63 Year
  Sex: Male
  Weight: 112 kg

DRUGS (2)
  1. OMNIPAQUE [Suspect]
     Active Substance: IOHEXOL
     Indication: Computerised tomogram abdomen
     Route: 042
     Dates: start: 20230718, end: 20230718
  2. OMNIPAQUE [Suspect]
     Active Substance: IOHEXOL
     Indication: Calculus urinary

REACTIONS (9)
  - Multiple organ dysfunction syndrome [Not Recovered/Not Resolved]
  - Hypotonia [Recovering/Resolving]
  - Cardiac arrest [Recovering/Resolving]
  - Anaphylactic reaction [Recovering/Resolving]
  - Dyspnoea [Recovering/Resolving]
  - Oedema mucosal [Recovering/Resolving]
  - Vomiting [Recovering/Resolving]
  - Nausea [Recovering/Resolving]
  - Erythema [Recovering/Resolving]

NARRATIVE: CASE EVENT DATE: 20230718
